FAERS Safety Report 9718791 (Version 1)
Quarter: 2013Q4

REPORT INFORMATION
  Report Type: Spontaneous
  Country: US (occurrence: US)
  Receive Date: 20131127
  Receipt Date: 20131127
  Transmission Date: 20140711
  Serious: Yes (Other)
  Sender: FDA-Public Use
  Company Number: US-PFIZER INC-2013335719

PATIENT
  Age: 17 Year
  Sex: Female
  Weight: 38.7 kg

DRUGS (4)
  1. FUROSEMIDE [Suspect]
     Dosage: UNK
  2. TOBRAMYCIN [Suspect]
     Dosage: UNK
  3. TACROLIMUS [Suspect]
     Dosage: UNK
  4. HEPARIN [Concomitant]
     Indication: ANTICOAGULANT THERAPY
     Dosage: UNK

REACTIONS (2)
  - Renal tubular necrosis [Unknown]
  - Renal failure acute [Recovered/Resolved]
